FAERS Safety Report 9301350 (Version 1)
Quarter: 2012Q4

REPORT INFORMATION
  Report Type: Spontaneous
  Country: IN (occurrence: None)
  Receive Date: 20121220
  Receipt Date: 20121220
  Transmission Date: 20130627
  Serious: Yes (Hospitalization)
  Sender: FDA-Public Use
  Company Number: 2012MA013645

PATIENT
  Age: 35 Year
  Sex: Female
  Weight: 65.2 kg

DRUGS (1)
  1. METOPROLOL SUCCINATE EXTENDED RELEASE / HYDROCHLOROTHIAZIDE TABLETS, 100 MG / 12.5 MG (AELLC) [Suspect]
     Route: 048

REACTIONS (2)
  - Platelet count decreased [None]
  - Dengue fever [None]
